FAERS Safety Report 7030869-6 (Version None)
Quarter: 2010Q4

REPORT INFORMATION
  Report Type: 
  Country: None (occurrence: None)
  Receive Date: 20101006
  Receipt Date: 20100929
  Transmission Date: 20110411
  Serious: Yes (Hospitalization, Other)
  Sender: FDA-Public Use
  Company Number: CA-ABBOTT-10P-028-0659151-00

PATIENT
  Sex: Female
  Weight: 72.64 kg

DRUGS (9)
  1. HUMIRA [Suspect]
     Indication: PSORIATIC ARTHROPATHY
     Route: 058
     Dates: start: 20100105
  2. HUMIRA [Suspect]
     Route: 058
     Dates: start: 20100414
  3. ACTONEL [Concomitant]
     Indication: OSTEOPOROSIS
     Route: 048
     Dates: end: 20100401
  4. OMEPRAZOLE [Concomitant]
     Indication: ULCER
     Route: 048
  5. NORVASC [Concomitant]
     Indication: HYPERTENSION
     Route: 048
  6. CALTRATE+VITAMIN D [Concomitant]
     Indication: PRODUCT USED FOR UNKNOWN INDICATION
     Route: 048
  7. MOTRIN [Concomitant]
     Indication: PAIN
     Route: 048
  8. PREDNISONE [Concomitant]
     Indication: PRODUCT USED FOR UNKNOWN INDICATION
     Route: 048
     Dates: start: 20000101, end: 20100101
  9. PREDNISONE [Concomitant]
     Dosage: 2.5 MG DAILY
     Route: 048
     Dates: start: 20100101

REACTIONS (8)
  - ARTHRALGIA [None]
  - ARTHRITIS [None]
  - ARTHROPATHY [None]
  - FOOD INTOLERANCE [None]
  - GAIT DISTURBANCE [None]
  - JOINT SWELLING [None]
  - MALAISE [None]
  - WEIGHT INCREASED [None]
